FAERS Safety Report 23341248 (Version 2)
Quarter: 2023Q4

REPORT INFORMATION
  Report Type: Spontaneous
  Country: JP (occurrence: JP)
  Receive Date: 20231227
  Receipt Date: 20231229
  Transmission Date: 20240109
  Serious: Yes (Death, Other)
  Sender: FDA-Public Use
  Company Number: JP-GENMAB-2023-02386

PATIENT
  Age: 6 Decade

DRUGS (3)
  1. EPKINLY [Suspect]
     Active Substance: EPCORITAMAB-BYSP
     Indication: Diffuse large B-cell lymphoma refractory
     Dosage: UNK
     Route: 058
     Dates: start: 20231129, end: 20231129
  2. EPKINLY [Suspect]
     Active Substance: EPCORITAMAB-BYSP
     Dosage: UNK
     Route: 058
     Dates: start: 20231206, end: 20231206
  3. EPKINLY [Suspect]
     Active Substance: EPCORITAMAB-BYSP
     Indication: Diffuse large B-cell lymphoma refractory
     Dosage: DAILY DOSE: 48 MILLIGRAM
     Route: 058
     Dates: start: 20231219, end: 20231219

REACTIONS (9)
  - Renal failure [Fatal]
  - Malignant neoplasm progression [Unknown]
  - Renal impairment [Unknown]
  - Cytokine release syndrome [Not Recovered/Not Resolved]
  - Bacterial infection [Unknown]
  - Blood lactate dehydrogenase increased [Unknown]
  - Pleural effusion [Unknown]
  - Generalised oedema [Unknown]
  - Pyrexia [Not Recovered/Not Resolved]

NARRATIVE: CASE EVENT DATE: 20231201
